FAERS Safety Report 20825743 (Version 1)
Quarter: 2022Q2

REPORT INFORMATION
  Report Type: Spontaneous
  Country: US (occurrence: None)
  Receive Date: 20220512
  Receipt Date: 20220512
  Transmission Date: 20220720
  Serious: No
  Sender: FDA-Public Use
  Company Number: None

PATIENT
  Sex: Female

DRUGS (1)
  1. HUMIRA [Suspect]
     Active Substance: ADALIMUMAB
     Indication: Psoriatic arthropathy
     Dosage: OTHER FREQUENCY : EVERY14DAYS;?
     Route: 058
     Dates: start: 20220302

REACTIONS (6)
  - Drug dose omission by device [None]
  - Drug delivery system malfunction [None]
  - Needle issue [None]
  - Psoriasis [None]
  - Accidental exposure to product [None]
  - Exposure via skin contact [None]
